FAERS Safety Report 4323552-9 (Version None)
Quarter: 2004Q1

REPORT INFORMATION
  Report Type: 
  Country: None (occurrence: None)
  Receive Date: 20040325
  Receipt Date: 20030407
  Transmission Date: 20041129
  Serious: Yes (Hospitalization, Disabling, Other)
  Sender: FDA-Public Use
  Company Number: WAES 0304USA00747

PATIENT
  Age: 47 Year
  Sex: Female
  Weight: 89 kg

DRUGS (2)
  1. TYLENOL (CAPLET) [Concomitant]
  2. VIOXX [Suspect]
     Indication: BACK INJURY
     Route: 048

REACTIONS (7)
  - BLINDNESS [None]
  - CEREBROVASCULAR ACCIDENT [None]
  - DEAFNESS [None]
  - DYSPEPSIA [None]
  - EMOTIONAL DISTRESS [None]
  - GASTROINTESTINAL DISORDER [None]
  - INJURY [None]
